FAERS Safety Report 9152210 (Version 2)
Quarter: 2013Q3

REPORT INFORMATION
  Report Type: Spontaneous
  Country: US (occurrence: US)
  Receive Date: 20130308
  Receipt Date: 20130702
  Transmission Date: 20140515
  Serious: Yes (Other)
  Sender: FDA-Public Use
  Company Number: CHPA2013US003993

PATIENT
  Sex: Male

DRUGS (1)
  1. EXCEDRIN EXTRA STRENGTH [Suspect]
     Indication: HEADACHE
     Dosage: 2 DF, 2 TO 3 TIMES PER DAY
     Route: 048
     Dates: end: 20060731

REACTIONS (2)
  - Myocardial infarction [Recovered/Resolved]
  - Malaise [Unknown]
